FAERS Safety Report 7200492-9 (Version None)
Quarter: 2010Q4

REPORT INFORMATION
  Report Type: 
  Country: None (occurrence: None)
  Receive Date: 20101228
  Receipt Date: 20101222
  Transmission Date: 20110411
  Serious: Yes (Death)
  Sender: FDA-Public Use
  Company Number: CN-PFIZER INC-2010177040

PATIENT
  Age: 53 Year
  Sex: Female

DRUGS (4)
  1. CEFOPERAZONE SODIUM [Suspect]
     Indication: UPPER RESPIRATORY TRACT INFECTION
     Route: 041
  2. RIBAVIRIN [Concomitant]
     Indication: UPPER RESPIRATORY TRACT INFECTION
     Route: 041
  3. AMINOPYRINE [Concomitant]
     Indication: UPPER RESPIRATORY TRACT INFECTION
     Route: 030
  4. BARBITAL SODIUM [Concomitant]
     Indication: UPPER RESPIRATORY TRACT INFECTION

REACTIONS (3)
  - HYPERSENSITIVITY [None]
  - LOSS OF CONSCIOUSNESS [None]
  - PALPITATIONS [None]
